FAERS Safety Report 8579659-3 (Version None)
Quarter: 2012Q3

REPORT INFORMATION
  Report Type: 
  Country: None (occurrence: None)
  Receive Date: 20120808
  Receipt Date: 20120801
  Transmission Date: 20120928
  Serious: Yes (Hospitalization)
  Sender: FDA-Public Use
  Company Number: JP-ROCHE-706979

PATIENT
  Sex: Female
  Weight: 59 kg

DRUGS (20)
  1. REBAMIPIDE [Concomitant]
  2. ACTEMRA [Suspect]
     Route: 041
     Dates: start: 20120516, end: 20120516
  3. PREDNISOLONE [Concomitant]
     Route: 048
  4. FOLIC ACID [Concomitant]
     Route: 048
     Dates: start: 20090911, end: 20100511
  5. PITAVASTATIN [Concomitant]
  6. MUCOSTA [Concomitant]
     Indication: PROPHYLAXIS AGAINST GASTROINTESTINAL ULCER
     Route: 048
     Dates: start: 20090728, end: 20100603
  7. PREDNISOLONE [Concomitant]
     Indication: RHEUMATOID ARTHRITIS
     Route: 048
     Dates: start: 20010101
  8. FOLIC ACID [Concomitant]
     Indication: ADVERSE DRUG REACTION
     Dates: start: 20090911, end: 20100511
  9. LIVALO [Concomitant]
     Route: 048
     Dates: start: 20100203, end: 20100511
  10. ZANTAC [Concomitant]
     Indication: PROPHYLAXIS AGAINST GASTROINTESTINAL ULCER
     Route: 048
     Dates: start: 20100317, end: 20100603
  11. RHEUMATREX [Concomitant]
     Route: 048
     Dates: start: 20090911, end: 20100511
  12. PREDNISOLONE [Concomitant]
     Route: 048
  13. CELECOXIB [Concomitant]
     Indication: PROPHYLAXIS AGAINST GASTROINTESTINAL ULCER
     Dosage: DRUG REPORTED AS CELECOX
     Route: 048
     Dates: start: 20100317, end: 20100603
  14. ONEALFA [Concomitant]
     Route: 048
  15. ACTEMRA [Suspect]
     Indication: RHEUMATOID ARTHRITIS
     Dosage: DOSAGE UNCERTAIN.
     Route: 041
     Dates: start: 20100121, end: 20100420
  16. RANITIDINE [Concomitant]
  17. METHOTREXATE [Concomitant]
  18. MEDROL [Concomitant]
     Indication: RHEUMATOID ARTHRITIS
     Route: 048
     Dates: start: 20100101
  19. RHEUMATREX [Concomitant]
     Indication: RHEUMATOID ARTHRITIS
     Route: 048
     Dates: start: 20090911, end: 20100420
  20. NEORAL [Concomitant]
     Indication: RHEUMATOID ARTHRITIS
     Route: 048
     Dates: start: 20100910

REACTIONS (3)
  - URTICARIA [None]
  - EOSINOPHILIA [None]
  - RASH [None]
